FAERS Safety Report 8307559 (Version 51)
Quarter: 2016Q3

REPORT INFORMATION
  Report Type: Spontaneous
  Country: CA (occurrence: CA)
  Receive Date: 20111222
  Receipt Date: 20160920
  Transmission Date: 20161109
  Serious: Yes (Life-Threatening, Hospitalization, Other)
  Sender: FDA-Public Use
  Company Number: CA-ROCHE-1023801

PATIENT
  Age: 74 Year
  Sex: Female
  Weight: 76 kg

DRUGS (25)
  1. XOLAIR [Suspect]
     Active Substance: OMALIZUMAB
     Route: 058
     Dates: start: 20061214
  2. XOLAIR [Suspect]
     Active Substance: OMALIZUMAB
     Route: 058
     Dates: start: 20130927
  3. XOLAIR [Suspect]
     Active Substance: OMALIZUMAB
     Route: 058
     Dates: start: 20140829
  4. XOLAIR [Suspect]
     Active Substance: OMALIZUMAB
     Route: 058
     Dates: start: 20150429
  5. XOLAIR [Suspect]
     Active Substance: OMALIZUMAB
     Indication: ASTHMA
     Route: 058
     Dates: start: 20060215
  6. XOLAIR [Suspect]
     Active Substance: OMALIZUMAB
     Route: 058
     Dates: start: 20130607
  7. XOLAIR [Suspect]
     Active Substance: OMALIZUMAB
     Route: 058
     Dates: start: 20160617
  8. XOLAIR [Suspect]
     Active Substance: OMALIZUMAB
     Route: 058
     Dates: start: 20160914
  9. XOLAIR [Suspect]
     Active Substance: OMALIZUMAB
     Route: 058
     Dates: start: 20131220
  10. XOLAIR [Suspect]
     Active Substance: OMALIZUMAB
     Route: 058
     Dates: start: 20140314
  11. XOLAIR [Suspect]
     Active Substance: OMALIZUMAB
     Route: 058
     Dates: start: 20160322
  12. XOLAIR [Suspect]
     Active Substance: OMALIZUMAB
     Route: 058
     Dates: start: 20160819
  13. XOLAIR [Suspect]
     Active Substance: OMALIZUMAB
     Route: 058
     Dates: start: 20131025
  14. XOLAIR [Suspect]
     Active Substance: OMALIZUMAB
     Route: 058
     Dates: start: 20141028
  15. XOLAIR [Suspect]
     Active Substance: OMALIZUMAB
     Route: 058
     Dates: start: 20141121
  16. XOLAIR [Suspect]
     Active Substance: OMALIZUMAB
     Route: 058
     Dates: start: 20150129
  17. XOLAIR [Suspect]
     Active Substance: OMALIZUMAB
     Route: 058
     Dates: start: 20160713
  18. XOLAIR [Suspect]
     Active Substance: OMALIZUMAB
     Route: 058
     Dates: start: 20130705
  19. XOLAIR [Suspect]
     Active Substance: OMALIZUMAB
     Route: 058
     Dates: start: 20160420
  20. PREDNISONE. [Suspect]
     Active Substance: PREDNISONE
     Indication: ASTHMA
     Route: 065
  21. XOLAIR [Suspect]
     Active Substance: OMALIZUMAB
     Route: 058
     Dates: start: 20121012
  22. XOLAIR [Suspect]
     Active Substance: OMALIZUMAB
     Route: 058
     Dates: start: 20130802
  23. SEEBRI [Suspect]
     Active Substance: GLYCOPYRRONIUM
     Indication: PRODUCT USED FOR UNKNOWN INDICATION
     Dosage: 1 DOSAGE FORM (DF), PUFF
     Route: 055
  24. XOLAIR [Suspect]
     Active Substance: OMALIZUMAB
     Route: 058
     Dates: start: 201303
  25. XOLAIR [Suspect]
     Active Substance: OMALIZUMAB
     Route: 058
     Dates: start: 20130830

REACTIONS (50)
  - Fall [Unknown]
  - Balance disorder [Unknown]
  - Urinary tract infection [Unknown]
  - Pulmonary congestion [Unknown]
  - Hypopnoea [Unknown]
  - Lethargy [Recovered/Resolved]
  - Respiratory rate increased [Unknown]
  - Soft tissue injury [Recovering/Resolving]
  - Asthenia [Not Recovered/Not Resolved]
  - Weight decreased [Unknown]
  - Urinary retention [Recovered/Resolved]
  - Back pain [Unknown]
  - Oedema peripheral [Unknown]
  - Excoriation [Unknown]
  - Weight increased [Recovering/Resolving]
  - Pulmonary oedema [Unknown]
  - Hypoventilation [Unknown]
  - Drug prescribing error [Unknown]
  - Obstructive airways disorder [Unknown]
  - Neuropathy peripheral [Unknown]
  - Cystitis [Unknown]
  - Consciousness fluctuating [Unknown]
  - Contusion [Unknown]
  - Rales [Unknown]
  - Decreased appetite [Unknown]
  - Lung infection [Unknown]
  - Asthma [Recovering/Resolving]
  - Fibromyalgia [Unknown]
  - Blood pressure increased [Not Recovered/Not Resolved]
  - Somnolence [Unknown]
  - Peripheral swelling [Unknown]
  - Arthritis [Unknown]
  - Cytomegalovirus infection [Unknown]
  - Insomnia [Unknown]
  - White blood cell count decreased [Unknown]
  - Bacterial infection [Unknown]
  - Pneumonia [Unknown]
  - Fungaemia [Unknown]
  - Bone pain [Unknown]
  - Gait disturbance [Unknown]
  - Fatigue [Recovering/Resolving]
  - Influenza like illness [Unknown]
  - Immune system disorder [Unknown]
  - Infection susceptibility increased [Unknown]
  - Anaemia [Unknown]
  - Limb discomfort [Not Recovered/Not Resolved]
  - Oedema [Unknown]
  - Sleep apnoea syndrome [Unknown]
  - Skin atrophy [Unknown]
  - Constipation [Unknown]

NARRATIVE: CASE EVENT DATE: 2012
